FAERS Safety Report 19241208 (Version 1)
Quarter: 2021Q2

REPORT INFORMATION
  Report Type: Spontaneous
  Country: US (occurrence: US)
  Receive Date: 20210511
  Receipt Date: 20210511
  Transmission Date: 20210717
  Serious: Yes (Hospitalization)
  Sender: FDA-Public Use
  Company Number: None

PATIENT
  Age: 58 Year
  Sex: Female

DRUGS (1)
  1. TALTZ [Suspect]
     Active Substance: IXEKIZUMAB
     Indication: PSORIATIC ARTHROPATHY
     Dosage: ?          OTHER FREQUENCY:ONCE MONTHLY;?
     Route: 058
     Dates: start: 20190222

REACTIONS (5)
  - Therapy interrupted [None]
  - Alopecia [None]
  - Weight increased [None]
  - Diabetes mellitus [None]
  - COVID-19 pneumonia [None]
